FAERS Safety Report 4465932-7 (Version None)
Quarter: 2004Q3

REPORT INFORMATION
  Report Type: 
  Country: None (occurrence: None)
  Receive Date: 20040930
  Receipt Date: 20040930
  Transmission Date: 20050211
  Serious: Yes (Life-Threatening, Other)
  Sender: FDA-Public Use
  Company Number: None

PATIENT
  Age: 52 Year
  Sex: Female
  Weight: 56.6996 kg

DRUGS (4)
  1. PAXIL CR [Suspect]
     Indication: ANXIETY
     Dosage: 25 MG 1 PER DAY ORAL
     Route: 048
     Dates: start: 20040811, end: 20040813
  2. DILTIAZEM [Concomitant]
  3. ATENOLOL [Concomitant]
  4. PAXIL CR [Concomitant]

REACTIONS (13)
  - DRUG WITHDRAWAL SYNDROME [None]
  - FEELING ABNORMAL [None]
  - FLUSHING [None]
  - MUSCLE TWITCHING [None]
  - MUSCULOSKELETAL STIFFNESS [None]
  - NERVOUS SYSTEM DISORDER [None]
  - NERVOUSNESS [None]
  - PHOTOPSIA [None]
  - SENSATION OF PRESSURE [None]
  - SPINAL CORD DISORDER [None]
  - SWELLING [None]
  - VISION BLURRED [None]
  - VISUAL DISTURBANCE [None]
